FAERS Safety Report 9454017 (Version 2)
Quarter: 2013Q3

REPORT INFORMATION
  Report Type: Spontaneous
  Country: US (occurrence: US)
  Receive Date: 20130812
  Receipt Date: 20130829
  Transmission Date: 20140515
  Serious: Yes (Other)
  Sender: FDA-Public Use
  Company Number: US-THROMBOGENICS INC-JET-2013-207

PATIENT
  Sex: 0

DRUGS (1)
  1. JETREA [Suspect]
     Indication: MACULAR HOLE
     Dosage: 0.125 MG, ONE TIME DOSE
     Route: 031
     Dates: start: 20130606, end: 20130606

REACTIONS (9)
  - Iritis [Recovered/Resolved]
  - Eye pain [Recovered/Resolved]
  - Miosis [Recovered/Resolved]
  - Eye pain [Recovered/Resolved]
  - Photophobia [Recovered/Resolved]
  - Anterior chamber cell [Recovered/Resolved]
  - Macular hole [Recovered/Resolved]
  - Drug ineffective for unapproved indication [Unknown]
  - Disease progression [Recovered/Resolved]
